FAERS Safety Report 7984871-8 (Version None)
Quarter: 2011Q4

REPORT INFORMATION
  Report Type: 
  Country: None (occurrence: None)
  Receive Date: 20111216
  Receipt Date: 20110928
  Transmission Date: 20120403
  Serious: No
  Sender: FDA-Public Use
  Company Number: US-ALLERGAN-1112864US

PATIENT
  Age: 48 Year
  Sex: Female

DRUGS (5)
  1. LATISSE [Suspect]
     Dosage: 1 GTT, UNK
     Route: 061
     Dates: start: 20110201, end: 20110801
  2. LATISSE [Suspect]
     Dosage: 1 GTT, QHS
     Route: 061
     Dates: start: 20110901
  3. LATISSE [Suspect]
     Indication: GROWTH OF EYELASHES
     Dosage: 1 GTT, QHS
     Dates: start: 20100901, end: 20110201
  4. LATISSE [Suspect]
     Dosage: 1 GTT, UNKNOWN
     Route: 061
     Dates: start: 20110801, end: 20110901
  5. LATISSE [Suspect]

REACTIONS (2)
  - INCORRECT DOSE ADMINISTERED [None]
  - HAIR GROWTH ABNORMAL [None]
